FAERS Safety Report 4341214-9 (Version None)
Quarter: 2004Q1

REPORT INFORMATION
  Report Type: 
  Country: None (occurrence: None)
  Receive Date: 20040329
  Receipt Date: 20040225
  Transmission Date: 20041129
  Serious: No
  Sender: FDA-Public Use
  Company Number: 04P-163-0251281-00

PATIENT
  Age: 58 Year
  Sex: Female

DRUGS (10)
  1. HUMIRA [Suspect]
     Indication: RHEUMATOID ARTHRITIS
     Dosage: 40 MG, SUBCUTANEOUS
     Route: 058
     Dates: start: 20040218
  2. METHOTREXATE [Concomitant]
  3. CELECOXIB [Concomitant]
  4. LEVOTHYROXINE SODIUM [Concomitant]
  5. FOLIC ACID [Concomitant]
  6. SERTRALINE HYDROCHLORIDE [Concomitant]
  7. RISEDRONATE SODIUM [Concomitant]
  8. CALCIUM [Concomitant]
  9. TOCOPHEROL CONCENTRATE CAP [Concomitant]
  10. RESTASIS [Concomitant]

REACTIONS (1)
  - INJECTION SITE BURNING [None]
